FAERS Safety Report 21200643 (Version 1)
Quarter: 2022Q3

REPORT INFORMATION
  Report Type: Spontaneous
  Country: US (occurrence: None)
  Receive Date: 20220811
  Receipt Date: 20220811
  Transmission Date: 20221027
  Serious: Yes (Death)
  Sender: FDA-Public Use
  Company Number: 2022A281442

PATIENT
  Age: 81 Year
  Sex: Male
  Weight: 70.8 kg

DRUGS (1)
  1. IMFINZI [Suspect]
     Active Substance: DURVALUMAB
     Indication: Neoplasm malignant
     Dosage: 10 MG/KG, EVERY 14 DAYS
     Route: 042
     Dates: start: 20210603

REACTIONS (1)
  - Death [Fatal]

NARRATIVE: CASE EVENT DATE: 20220325
